FAERS Safety Report 9755652 (Version 1)
Quarter: 2013Q4

REPORT INFORMATION
  Report Type: Spontaneous
  Country: US (occurrence: US)
  Receive Date: 20131213
  Receipt Date: 20131213
  Transmission Date: 20140711
  Serious: No
  Sender: FDA-Public Use
  Company Number: US-GLAXOSMITHKLINE-A1021979A

PATIENT
  Age: 41 Year
  Sex: Female
  Weight: 45 kg

DRUGS (3)
  1. EQUATE NTS 7MG, CLEAR [Suspect]
     Indication: EX-TOBACCO USER
     Dates: start: 20130429, end: 20130429
  2. ALLEGRA [Concomitant]
  3. BLOOD PRESSURE MEDICATION [Concomitant]

REACTIONS (2)
  - Application site irritation [Recovered/Resolved]
  - Product quality issue [Unknown]
